FAERS Safety Report 6157727-3 (Version None)
Quarter: 2009Q2

REPORT INFORMATION
  Report Type: 
  Country: None (occurrence: None)
  Receive Date: 20090416
  Receipt Date: 20090123
  Transmission Date: 20091009
  Serious: Yes (Hospitalization)
  Sender: FDA-Public Use
  Company Number: FR-GENENTECH-275792

PATIENT
  Sex: Female

DRUGS (8)
  1. RITUXIMAB [Suspect]
     Indication: NON-HODGKIN'S LYMPHOMA
     Dosage: 630 MG, QD
     Route: 042
     Dates: start: 20081208
  2. METHOTREXATE [Suspect]
     Indication: NON-HODGKIN'S LYMPHOMA
     Dosage: 5100 MG, QD
     Route: 037
     Dates: start: 20081209
  3. VINCRISTINE [Suspect]
     Indication: NON-HODGKIN'S LYMPHOMA
     Dosage: 2 MG, QD
     Route: 042
     Dates: start: 20081209
  4. METHYLPREDNISOLONE 4MG TAB [Suspect]
     Indication: NON-HODGKIN'S LYMPHOMA
     Dosage: 320 MG, QD
     Route: 042
     Dates: start: 20081209
  5. METHYLPREDNISOLONE 4MG TAB [Suspect]
     Dosage: 160 MG, QD
     Route: 042
     Dates: start: 20081213
  6. DOXORUBICIN [Suspect]
     Indication: NON-HODGKIN'S LYMPHOMA
     Dosage: 100 MG, QD
     Route: 042
     Dates: start: 20081210
  7. DEPOCYT [Suspect]
     Indication: NON-HODGKIN'S LYMPHOMA
     Dosage: 50 MG, QD
     Route: 037
     Dates: start: 20081210
  8. CYCLOPHOSPHAMIDE [Suspect]
     Indication: NON-HODGKIN'S LYMPHOMA
     Dosage: 2520 MG, QD
     Route: 042
     Dates: start: 20081210

REACTIONS (1)
  - LUNG DISORDER [None]
